FAERS Safety Report 9012529 (Version 1)
Quarter: 2013Q1

REPORT INFORMATION
  Report Type: Spontaneous
  Country: US (occurrence: US)
  Receive Date: 20130114
  Receipt Date: 20130114
  Transmission Date: 20140127
  Serious: Yes (Disabling)
  Sender: FDA-Public Use
  Company Number: US-009507513-1301USA001872

PATIENT
  Age: 68 Year
  Sex: Female

DRUGS (10)
  1. MONTELUKAST SODIUM [Suspect]
     Dosage: 10 MG/DAY
     Route: 048
  2. HOKUNALIN [Concomitant]
     Indication: ASTHMA
     Dosage: 2 MG, TID
     Route: 061
  3. PULMICORT [Concomitant]
     Indication: GASTRITIS
     Dosage: 800 UG
  4. PULMICORT [Concomitant]
     Dosage: UNKNOWN
  5. PULMICORT [Concomitant]
     Indication: HYPERTENSION
     Dosage: 1600 UG
  6. ARRESTEN [Concomitant]
     Dosage: 150 MG, UNK
     Route: 048
  7. ULCERLMIN [Concomitant]
     Dosage: 3 G, UNK
     Route: 048
  8. THEO-DUR [Concomitant]
     Dosage: 200 MG, UNK
     Route: 048
  9. NORVASC [Concomitant]
     Dosage: 5 MG, UNK
     Route: 048
  10. DIOVAN [Suspect]
     Dosage: 80 MG/DAY
     Route: 048

REACTIONS (3)
  - White blood cell count decreased [Unknown]
  - Red blood cell count decreased [Unknown]
  - Platelet count decreased [Unknown]
